FAERS Safety Report 6925955-2 (Version None)
Quarter: 2010Q3

REPORT INFORMATION
  Report Type: 
  Country: None (occurrence: None)
  Receive Date: 20100816
  Receipt Date: 20100804
  Transmission Date: 20110219
  Serious: Yes (Other)
  Sender: FDA-Public Use
  Company Number: CA-PFIZER INC-2010098007

PATIENT
  Age: 43 Year
  Sex: Male

DRUGS (4)
  1. LYRICA [Suspect]
     Indication: TREMOR
     Dosage: 75 MG, 1X/DAY
     Dates: start: 20100705, end: 20100711
  2. LAMICTAL [Concomitant]
     Dosage: 125 MG, UNK
  3. EPIVAL [Concomitant]
     Dosage: 1500 MG IN AM, 1000 MG IN PM AND 1000 MG AT BEDTIME
  4. METFORMIN [Concomitant]
     Dosage: 250 MG, 3X/DAY

REACTIONS (1)
  - EPILEPSY [None]
